FAERS Safety Report 12528300 (Version 1)
Quarter: 2016Q3

REPORT INFORMATION
  Report Type: Spontaneous
  Country: None (occurrence: US)
  Receive Date: 20160705
  Receipt Date: 20160705
  Transmission Date: 20161109
  Serious: Yes (Other)
  Sender: FDA-Public Use
  Company Number: US-CONCORDIA PHARMACEUTICALS INC.-CO-KP-US-2016-002

PATIENT
  Age: 4 Year
  Sex: Male

DRUGS (1)
  1. CLONIDINE. [Suspect]
     Active Substance: CLONIDINE
     Indication: ATTENTION-SEEKING BEHAVIOUR

REACTIONS (3)
  - Overdose [Unknown]
  - Listless [Unknown]
  - Drug administered to patient of inappropriate age [Unknown]
